FAERS Safety Report 11891811 (Version 1)
Quarter: 2016Q1

REPORT INFORMATION
  Report Type: Spontaneous
  Country: US (occurrence: US)
  Receive Date: 20160106
  Receipt Date: 20160106
  Transmission Date: 20160526
  Serious: No
  Sender: FDA-Public Use
  Company Number: US-009507513-2008SP003620

PATIENT
  Sex: Female
  Weight: 78.47 kg

DRUGS (3)
  1. PEGINTRON [Suspect]
     Active Substance: PEGINTERFERON ALFA-2B
     Indication: HEPATITIS C
  2. HYDRO.C.SOD.SUC. [Concomitant]
     Indication: ADDISON^S DISEASE
     Dosage: 20 MG, QD
     Route: 048
     Dates: start: 200610
  3. MK-8908 [Suspect]
     Active Substance: INVESTIGATIONAL PRODUCT
     Indication: HEPATITIS C

REACTIONS (2)
  - Exposure via father [Unknown]
  - No adverse event [Unknown]
